FAERS Safety Report 10411744 (Version 2)
Quarter: 2014Q4

REPORT INFORMATION
  Report Type: Spontaneous
  Country: US (occurrence: None)
  Receive Date: 20140604
  Receipt Date: 20141010
  Transmission Date: 20150528
  Serious: Yes (Hospitalization)
  Sender: FDA-Public Use
  Company Number: 163-POMAL-14043743

PATIENT
  Age: 72 Year
  Sex: Male

DRUGS (1)
  1. POMALYST [Suspect]
     Active Substance: POMALIDOMIDE
     Indication: PLASMA CELL MYELOMA
     Dosage: 3 MG,  21 IN 28 D,  PO
     Route: 048
     Dates: start: 20130916, end: 2014

REACTIONS (1)
  - Pneumonia [None]

NARRATIVE: CASE EVENT DATE: 20140404
